FAERS Safety Report 23724373 (Version 1)
Quarter: 2024Q2

REPORT INFORMATION
  Report Type: Spontaneous
  Country: US (occurrence: US)
  Receive Date: 20240409
  Receipt Date: 20240409
  Transmission Date: 20240715
  Serious: No
  Sender: FDA-Public Use
  Company Number: US-FOUNDATIONCONSUMERHC-2023-US-019884

PATIENT
  Age: 18 Year
  Sex: Female
  Weight: 58.97 kg

DRUGS (1)
  1. TAKE ACTION [Suspect]
     Active Substance: LEVONORGESTREL
     Indication: Post coital contraception
     Dosage: TAKE ACTION ON 19-JUN-2023, PLAN B ON 20-JUN-2023, AND PLAN B ON 21-JUN-2023
     Route: 048
     Dates: start: 20230619, end: 20230621

REACTIONS (4)
  - Abdominal pain [Recovered/Resolved]
  - Intentional product misuse [Recovered/Resolved]
  - Incorrect dosage administered [Recovered/Resolved]
  - Dysmenorrhoea [Recovered/Resolved]

NARRATIVE: CASE EVENT DATE: 20230619
